FAERS Safety Report 7966901-2 (Version None)
Quarter: 2011Q4

REPORT INFORMATION
  Report Type: 
  Country: None (occurrence: None)
  Receive Date: 20111209
  Receipt Date: 20111128
  Transmission Date: 20120403
  Serious: Yes (Hospitalization)
  Sender: FDA-Public Use
  Company Number: US-ELI_LILLY_AND_COMPANY-US201103004363

PATIENT
  Sex: Female
  Weight: 50 kg

DRUGS (1)
  1. FORTEO [Suspect]
     Indication: OSTEOPOROSIS
     Dosage: 20 UG, DAILY (1/D)
     Route: 065
     Dates: start: 20110201, end: 20110928

REACTIONS (9)
  - WEIGHT DECREASED [None]
  - GAIT DISTURBANCE [None]
  - MEMORY IMPAIRMENT [None]
  - DYSPHONIA [None]
  - VISUAL IMPAIRMENT [None]
  - PIGMENTATION DISORDER [None]
  - ERYTHEMA [None]
  - INTENTIONAL DRUG MISUSE [None]
  - PAIN [None]
